FAERS Safety Report 5032392-7 (Version None)
Quarter: 2006Q2

REPORT INFORMATION
  Report Type: 
  Country: None (occurrence: None)
  Receive Date: 20060508
  Receipt Date: 20050503
  Transmission Date: 20061013
  Serious: Yes (Other)
  Sender: FDA-Public Use
  Company Number: 231723K05USA

PATIENT
  Age: 30 Year
  Sex: Female

DRUGS (6)
  1. REBIF [Suspect]
     Indication: MULTIPLE SCLEROSIS
     Dosage: 44 MCG, 3 IN 1 WEEKS, SUBCUTANEOUS
     Route: 058
     Dates: start: 20050127, end: 20050503
  2. IMITREX [Concomitant]
  3. SYNTHROID [Concomitant]
  4. LEXAPRO [Concomitant]
  5. RESTORIL [Concomitant]
  6. XANAX [Concomitant]

REACTIONS (5)
  - AXILLARY PAIN [None]
  - BLOOD THYROID STIMULATING HORMONE DECREASED [None]
  - HEPATIC ENZYME INCREASED [None]
  - NAUSEA [None]
  - WHITE BLOOD CELL COUNT DECREASED [None]
